FAERS Safety Report 11047349 (Version 4)
Quarter: 2015Q2

REPORT INFORMATION
  Report Type: Report from Study
  Country: US (occurrence: US)
  Receive Date: 20150420
  Receipt Date: 20150616
  Transmission Date: 20150821
  Serious: Yes (Death, Hospitalization, Other)
  Sender: FDA-Public Use
  Company Number: US-SA-2015SA048762

PATIENT
  Age: 51 Year
  Sex: Male

DRUGS (2)
  1. TECFIDERA [Concomitant]
     Active Substance: DIMETHYL FUMARATE
  2. LEMTRADA [Suspect]
     Active Substance: ALEMTUZUMAB
     Indication: MULTIPLE SCLEROSIS
     Route: 041
     Dates: start: 20150406, end: 20150410

REACTIONS (7)
  - Abdominal pain upper [Unknown]
  - Vomiting [Unknown]
  - Death [Fatal]
  - Ulcer [Unknown]
  - Nausea [Unknown]
  - Duodenal perforation [Unknown]
  - Abscess [Unknown]

NARRATIVE: CASE EVENT DATE: 201504
